FAERS Safety Report 5648933-2 (Version None)
Quarter: 2008Q1

REPORT INFORMATION
  Report Type: 
  Country: None (occurrence: None)
  Receive Date: 20080304
  Receipt Date: 20080222
  Transmission Date: 20080703
  Serious: Yes (Hospitalization)
  Sender: FDA-Public Use
  Company Number: US-JNJFOC-20080205793

PATIENT
  Sex: Female
  Weight: 68.04 kg

DRUGS (11)
  1. FENTANYL TRANSDERMAL SYSTEM [Suspect]
     Indication: PSORIASIS
     Route: 062
  2. FENTANYL TRANSDERMAL SYSTEM [Suspect]
     Indication: RHEUMATOID ARTHRITIS
     Route: 062
  3. REMICADE [Concomitant]
     Indication: RHEUMATOID ARTHRITIS
     Route: 042
  4. SYNTHROID [Concomitant]
     Indication: THYROID DISORDER
     Route: 048
  5. FOLIC ACID [Concomitant]
     Indication: GASTRIC BYPASS
     Route: 048
  6. PAXIL [Concomitant]
     Indication: DEPRESSION
     Route: 048
  7. BENICAR [Concomitant]
     Indication: BLOOD PRESSURE
     Route: 048
  8. ESTRACE [Concomitant]
     Route: 048
  9. LORTAB [Concomitant]
     Indication: BREAKTHROUGH PAIN
     Dosage: 7.5 MG - 500 MG
     Route: 048
  10. ZYRTEC [Concomitant]
     Indication: PRURITUS
     Route: 048
  11. VITAMIN B-12 [Concomitant]
     Indication: DRUG USE FOR UNKNOWN INDICATION
     Route: 058

REACTIONS (7)
  - BRONCHITIS [None]
  - DECREASED IMMUNE RESPONSIVENESS [None]
  - DISORIENTATION [None]
  - INAPPROPRIATE SCHEDULE OF DRUG ADMINISTRATION [None]
  - INFECTION [None]
  - INFLUENZA [None]
  - LOSS OF CONSCIOUSNESS [None]
